FAERS Safety Report 5456719-7 (Version None)
Quarter: 2007Q3

REPORT INFORMATION
  Report Type: 
  Country: None (occurrence: None)
  Receive Date: 20070918
  Receipt Date: 20070228
  Transmission Date: 20080115
  Serious: Yes (Other)
  Sender: FDA-Public Use
  Company Number: US-ASTRAZENECA-2006UW25790

PATIENT
  Sex: Female
  Weight: 118.2 kg

DRUGS (3)
  1. SEROQUEL [Suspect]
     Indication: DEPRESSION
     Route: 048
     Dates: start: 20000615, end: 20060910
  2. GEODON [Concomitant]
  3. RISPERDAL [Concomitant]

REACTIONS (2)
  - CONVULSION [None]
  - DIABETES MELLITUS [None]
